FAERS Safety Report 11051623 (Version 3)
Quarter: 2015Q2

REPORT INFORMATION
  Report Type: Spontaneous
  Country: US (occurrence: US)
  Receive Date: 20150421
  Receipt Date: 20150429
  Transmission Date: 20150821
  Serious: No
  Sender: FDA-Public Use
  Company Number: US-PFIZER INC-2015136063

PATIENT
  Age: 59 Year
  Sex: Female
  Weight: 53 kg

DRUGS (4)
  1. DITROPAN [Concomitant]
     Active Substance: OXYBUTYNIN CHLORIDE
     Indication: HYPERTONIC BLADDER
     Dosage: 5 MG, 1X/DAY
  2. ATIVAN [Concomitant]
     Active Substance: LORAZEPAM
     Indication: ANXIETY
     Dosage: 6 MG, DAILY
  3. KLONOPIN [Concomitant]
     Active Substance: CLONAZEPAM
     Indication: TINNITUS
     Dosage: 1 MG, DAILY
  4. PRISTIQ EXTENDED RELEASE [Suspect]
     Active Substance: DESVENLAFAXINE SUCCINATE
     Indication: DEPRESSION
     Dosage: 50 MG, 2X/DAY
     Dates: start: 201502

REACTIONS (3)
  - Drug ineffective [Unknown]
  - Medication residue present [Unknown]
  - Intentional product misuse [Not Recovered/Not Resolved]

NARRATIVE: CASE EVENT DATE: 201502
